FAERS Safety Report 10251001 (Version 1)
Quarter: 2014Q2

REPORT INFORMATION
  Report Type: Spontaneous
  Country: CH (occurrence: CH)
  Receive Date: 20140620
  Receipt Date: 20140620
  Transmission Date: 20141212
  Serious: Yes (Hospitalization, Other)
  Sender: FDA-Public Use
  Company Number: CH-ELI_LILLY_AND_COMPANY-CH201406003122

PATIENT
  Age: 17 Year
  Sex: Male
  Weight: 70 kg

DRUGS (6)
  1. ZYPREXA [Suspect]
     Indication: MANIA
     Dosage: 30 MG, QD
     Route: 048
     Dates: start: 201202
  2. ZYPREXA [Interacting]
     Dosage: UNK UNK, UNKNOWN
     Route: 048
  3. ZYPREXA [Interacting]
     Dosage: 12.5 MG, QD
     Route: 048
     Dates: start: 201305
  4. DEPAKIN CHRONO [Interacting]
     Indication: MANIA
     Dosage: 1500 MG, UNKNOWN
     Route: 048
     Dates: start: 201202
  5. DEPAKIN CHRONO [Interacting]
     Dosage: UNK, UNKNOWN: PROGRESSIVELY REDUCED
     Route: 048
     Dates: end: 201210
  6. ALCOHOL [Interacting]
     Indication: PRODUCT USED FOR UNKNOWN INDICATION
     Dosage: UNK, UNKNOWN
     Route: 065

REACTIONS (6)
  - Hepatic steatosis [Recovered/Resolved]
  - Liver injury [Recovered/Resolved]
  - Cholelithiasis [Not Recovered/Not Resolved]
  - Weight increased [Recovered/Resolved]
  - Drug interaction [Unknown]
  - Prescribed overdose [Recovered/Resolved]
